FAERS Safety Report 24288624 (Version 1)
Quarter: 2024Q3

REPORT INFORMATION
  Report Type: Spontaneous
  Country: CN (occurrence: CN)
  Receive Date: 20240906
  Receipt Date: 20240906
  Transmission Date: 20241017
  Serious: Yes (Other)
  Sender: ABBVIE
  Company Number: CN-ABBVIE-5906686

PATIENT
  Age: 70 Year
  Sex: Female
  Weight: 55 kg

DRUGS (5)
  1. VENETOCLAX [Suspect]
     Active Substance: VENETOCLAX
     Indication: Adjuvant therapy
     Dosage: 0.2 GRAM
     Route: 048
     Dates: start: 20240823, end: 20240823
  2. VENETOCLAX [Suspect]
     Active Substance: VENETOCLAX
     Indication: Adjuvant therapy
     Dosage: 0.1 GRAM
     Route: 048
     Dates: start: 20240822, end: 20240822
  3. VENETOCLAX [Suspect]
     Active Substance: VENETOCLAX
     Indication: Adjuvant therapy
     Dosage: 0.1 GRAM
     Route: 048
     Dates: start: 20240824, end: 20240828
  4. CYTARABINE [Suspect]
     Active Substance: CYTARABINE
     Indication: Chemotherapy
     Dosage: 0.1 GRAM
     Route: 058
     Dates: start: 20240822, end: 20240825
  5. ITRACONAZOLE [Concomitant]
     Active Substance: ITRACONAZOLE
     Indication: Product used for unknown indication

REACTIONS (2)
  - Myelosuppression [Unknown]
  - White blood cell count decreased [Unknown]

NARRATIVE: CASE EVENT DATE: 20240824
